FAERS Safety Report 4726935-8 (Version None)
Quarter: 2005Q3

REPORT INFORMATION
  Report Type: 
  Country: None (occurrence: None)
  Receive Date: 20050725
  Receipt Date: 20050725
  Transmission Date: 20060218
  Serious: Yes (Other)
  Sender: FDA-Public Use
  Company Number: None

PATIENT
  Age: 15 Month
  Sex: Female
  Weight: 9.0719 kg

DRUGS (1)
  1. ELIDEL [Suspect]
     Indication: ECZEMA
     Dosage: 2-3 TIMES DAY   TOPICAL
     Route: 061
     Dates: start: 20031215, end: 20050722

REACTIONS (3)
  - FOOD ALLERGY [None]
  - HYPERSENSITIVITY [None]
  - URTICARIA [None]
